FAERS Safety Report 13434568 (Version 1)
Quarter: 2017Q2

REPORT INFORMATION
  Report Type: Spontaneous
  Country: US (occurrence: US)
  Receive Date: 20170413
  Receipt Date: 20170413
  Transmission Date: 20170830
  Serious: Yes (Hospitalization)
  Sender: FDA-Public Use
  Company Number: US-JNJFOC-20170406237

PATIENT
  Age: 79 Year
  Sex: Male
  Weight: 77.11 kg

DRUGS (4)
  1. ZYTIGA [Suspect]
     Active Substance: ABIRATERONE ACETATE
     Indication: BONE CANCER METASTATIC
     Route: 048
     Dates: start: 20170114
  2. PREDNISONE. [Suspect]
     Active Substance: PREDNISONE
     Indication: PROSTATIC SPECIFIC ANTIGEN
     Route: 048
  3. ZYTIGA [Suspect]
     Active Substance: ABIRATERONE ACETATE
     Indication: PROSTATIC SPECIFIC ANTIGEN
     Route: 048
     Dates: start: 20170114
  4. PREDNISONE. [Suspect]
     Active Substance: PREDNISONE
     Indication: BONE CANCER METASTATIC
     Route: 048

REACTIONS (5)
  - Peptic ulcer [Unknown]
  - Belligerence [Not Recovered/Not Resolved]
  - Pneumonia aspiration [Unknown]
  - Fungal oesophagitis [Unknown]
  - Aggression [Not Recovered/Not Resolved]

NARRATIVE: CASE EVENT DATE: 201701
